FAERS Safety Report 6117286-8 (Version None)
Quarter: 2009Q1

REPORT INFORMATION
  Report Type: 
  Country: None (occurrence: None)
  Receive Date: 20090314
  Receipt Date: 20090112
  Transmission Date: 20090719
  Serious: No
  Sender: FDA-Public Use
  Company Number: US-ABBOTT-09P-163-0497417-00

PATIENT
  Sex: Female
  Weight: 90.8 kg

DRUGS (11)
  1. HUMIRA [Suspect]
     Indication: RHEUMATOID ARTHRITIS
     Route: 058
     Dates: start: 20080901
  2. HUMIRA [Suspect]
     Dates: start: 20030501, end: 20080901
  3. ARAVA [Concomitant]
     Indication: ARTHRITIS
     Route: 048
  4. LOPRESSOR [Concomitant]
     Indication: ARTERIOSPASM CORONARY
     Route: 048
  5. PROZAC [Concomitant]
     Indication: DEPRESSION
     Route: 048
  6. PROZAC [Concomitant]
     Indication: FIBROMYALGIA
  7. SYNTHROID [Concomitant]
     Indication: HYPOTHYROIDISM
     Route: 048
  8. NAPROSYN [Concomitant]
     Indication: ARTHRITIS
     Route: 048
  9. FOLIC ACID [Concomitant]
     Indication: DRUG USE FOR UNKNOWN INDICATION
     Dosage: 1-2 TABLETS DAILY
     Route: 048
  10. KLONOPIN [Concomitant]
     Indication: INSOMNIA
     Dosage: 2 IN 1 DAY AS NEEDED
     Route: 048
  11. VICODIN [Concomitant]
     Indication: ARTHRALGIA
     Route: 048

REACTIONS (4)
  - JOINT STIFFNESS [None]
  - NODULE [None]
  - NODULE ON EXTREMITY [None]
  - PAIN IN EXTREMITY [None]
